FAERS Safety Report 5134555-9 (Version None)
Quarter: 2006Q4

REPORT INFORMATION
  Report Type: 
  Country: None (occurrence: None)
  Receive Date: 20061025
  Receipt Date: 20060616
  Transmission Date: 20070319
  Serious: Yes (Hospitalization)
  Sender: FDA-Public Use
  Company Number: 2006UW12926

PATIENT
  Age: 69 Year
  Sex: Male
  Weight: 101 kg

DRUGS (7)
  1. ZD1839 [Suspect]
     Indication: NON-SMALL CELL LUNG CANCER STAGE III
     Dosage: 250 MG PO DAILY X 1 YR
     Route: 048
     Dates: start: 20060322, end: 20060417
  2. DOCATAXEL [Suspect]
     Indication: NON-SMALL CELL LUNG CANCER STAGE III
     Dosage: 2.5 MG/M2 WEEKLY X 7 WEEKS
     Dates: start: 20060322, end: 20060417
  3. RADIATION THERAPY [Suspect]
     Indication: NON-SMALL CELL LUNG CANCER STAGE III
     Dosage: TOTAL DOSE 3600
     Dates: start: 20060322, end: 20060417
  4. HYDROCHLOROTHIAZIDE [Concomitant]
  5. GLYBURIDE AND METFORMIN HCL [Concomitant]
  6. ACTOS [Concomitant]
  7. ALTACE [Concomitant]

REACTIONS (9)
  - AORTIC VALVE SCLEROSIS [None]
  - ATRIAL FLUTTER [None]
  - DEHYDRATION [None]
  - HYPOTENSION [None]
  - OESOPHAGITIS [None]
  - RADIATION OESOPHAGITIS [None]
  - SUPRAVENTRICULAR EXTRASYSTOLES [None]
  - SUPRAVENTRICULAR TACHYCARDIA [None]
  - VENTRICULAR EXTRASYSTOLES [None]
